FAERS Safety Report 5284103-8 (Version None)
Quarter: 2007Q2

REPORT INFORMATION
  Report Type: 
  Country: None (occurrence: None)
  Receive Date: 20070403
  Receipt Date: 20070327
  Transmission Date: 20071010
  Serious: Yes (Hospitalization)
  Sender: FDA-Public Use
  Company Number: FR-SP-2007-00934

PATIENT
  Age: 70 Year
  Sex: Male
  Weight: 70 kg

DRUGS (1)
  1. IMMUCYST [Suspect]
     Indication: BLADDER CANCER
     Route: 043
     Dates: start: 20061019, end: 20061221

REACTIONS (6)
  - ESCHERICHIA URINARY TRACT INFECTION [None]
  - MYCOBACTERIAL INFECTION [None]
  - PYREXIA [None]
  - RENAL ABSCESS [None]
  - TREMOR [None]
  - TUBERCULOSIS [None]
